FAERS Safety Report 12603619 (Version 1)
Quarter: 2016Q3

REPORT INFORMATION
  Report Type: Spontaneous
  Country: US (occurrence: US)
  Receive Date: 20160728
  Receipt Date: 20160728
  Transmission Date: 20161109
  Serious: Yes (Life-Threatening, Hospitalization)
  Sender: FDA-Public Use
  Company Number: US-KALEO, INC-2016SA045531

PATIENT
  Age: 21 Year
  Sex: Female

DRUGS (1)
  1. EPINEPHRINE. [Suspect]
     Active Substance: EPINEPHRINE
     Indication: ANGIOEDEMA
     Dosage: UNKNOWN
     Route: 042

REACTIONS (10)
  - Ejection fraction decreased [Recovered/Resolved]
  - Hypokinesia [Recovered/Resolved]
  - Hypoxia [Recovering/Resolving]
  - Sinus tachycardia [Recovered/Resolved]
  - Pulmonary oedema [Unknown]
  - Chest X-ray abnormal [Unknown]
  - Tachypnoea [Recovering/Resolving]
  - Incorrect route of drug administration [Unknown]
  - Stress cardiomyopathy [Recovered/Resolved]
  - Hypotension [Recovered/Resolved]
